FAERS Safety Report 11869161 (Version 5)
Quarter: 2016Q1

REPORT INFORMATION
  Report Type: Spontaneous
  Country: JP (occurrence: JP)
  Receive Date: 20151226
  Receipt Date: 20160322
  Transmission Date: 20160526
  Serious: Yes (Death, Life-Threatening, Other)
  Sender: FDA-Public Use
  Company Number: JP-AMGEN-JPNSP2015138943

PATIENT
  Age: 74 Year
  Sex: Male
  Weight: 50 kg

DRUGS (24)
  1. CYCLOPHOSPHAMIDE MONOHYDRATE [Suspect]
     Active Substance: CYCLOPHOSPHAMIDE
     Indication: LYMPHOMA
     Dosage: 1200 MG, UNK
     Route: 042
     Dates: start: 20151031, end: 20151031
  2. RITUXAN [Suspect]
     Active Substance: RITUXIMAB
     Dosage: 600 MG, UNK
     Route: 041
     Dates: start: 20151213, end: 20151213
  3. CUBICIN [Concomitant]
     Active Substance: DAPTOMYCIN
     Indication: STAPHYLOCOCCAL INFECTION
     Dosage: 350 MG, QD
     Route: 042
     Dates: start: 20151108, end: 20151116
  4. ADRIACIN [Suspect]
     Active Substance: DOXORUBICIN HYDROCHLORIDE
     Dosage: 16 MG, UNK
     Route: 041
     Dates: start: 20151124, end: 20151127
  5. PREDNISOLONE. [Suspect]
     Active Substance: PREDNISOLONE
     Indication: LYMPHOMA
     Dosage: UNK
     Route: 048
  6. G-LASTA [Suspect]
     Active Substance: PEGFILGRASTIM
     Dosage: UNK, QD
     Route: 058
     Dates: start: 20151129, end: 20151129
  7. ETOPOSIDE. [Suspect]
     Active Substance: ETOPOSIDE
     Dosage: 80 MG, UNK
     Route: 041
     Dates: start: 20151124, end: 20151127
  8. VINCRISTINE SULFATE. [Suspect]
     Active Substance: VINCRISTINE SULFATE
     Dosage: 0.6 MG, UNK
     Route: 042
     Dates: start: 20151124, end: 20151127
  9. CELOOP [Concomitant]
     Indication: DIABETES MELLITUS
     Dosage: 50 MG, BID
     Route: 048
     Dates: start: 20151003, end: 20151219
  10. ENALAPRIL [Concomitant]
     Active Substance: ENALAPRIL
     Indication: MYOCARDIAL INFARCTION
     Dosage: 5 MG, QD
     Route: 048
     Dates: start: 20151003, end: 20151219
  11. FEBURIC [Concomitant]
     Active Substance: FEBUXOSTAT
     Indication: PROPHYLAXIS
     Dosage: 20 MG, QD
     Route: 048
     Dates: start: 20151023, end: 20151219
  12. AMBROXOL HYDROCHLORIDE [Concomitant]
     Active Substance: AMBROXOL HYDROCHLORIDE
     Indication: SPUTUM RETENTION
     Dosage: 15 MG, TID
     Route: 048
     Dates: start: 20151015, end: 20151219
  13. G-LASTA [Suspect]
     Active Substance: PEGFILGRASTIM
     Indication: COLONY STIMULATING FACTOR PROPHYLAXIS
     Dosage: UNK, QD
     Route: 058
     Dates: start: 20151101, end: 20151101
  14. VINCRISTINE SULFATE. [Suspect]
     Active Substance: VINCRISTINE SULFATE
     Indication: LYMPHOMA
     Dosage: 0.6 MG, UNK
     Route: 042
     Dates: start: 20151027, end: 20151030
  15. CYCLOPHOSPHAMIDE MONOHYDRATE [Suspect]
     Active Substance: CYCLOPHOSPHAMIDE
     Dosage: 1000 MG, UNK
     Route: 042
     Dates: start: 20151128, end: 20151128
  16. NEXIUM [Concomitant]
     Active Substance: ESOMEPRAZOLE MAGNESIUM
     Indication: PROPHYLAXIS AGAINST GASTROINTESTINAL ULCER
     Dosage: 20 MG, QD
     Route: 048
     Dates: start: 20151003, end: 20151219
  17. FINIBAX [Concomitant]
     Active Substance: DORIPENEM MONOHYDRATE
     Indication: FEBRILE NEUTROPENIA
     Dosage: 1 G, TID
     Route: 042
     Dates: start: 20151104, end: 20151113
  18. ADRIACIN [Suspect]
     Active Substance: DOXORUBICIN HYDROCHLORIDE
     Indication: LYMPHOMA
     Dosage: 16 MG, UNK
     Route: 041
     Dates: start: 20151027, end: 20151030
  19. RITUXAN [Suspect]
     Active Substance: RITUXIMAB
     Indication: LYMPHOMA
     Dosage: 600 MG, UNK
     Route: 041
     Dates: start: 20151117, end: 20151117
  20. BAYASPIRIN [Concomitant]
     Active Substance: ASPIRIN
     Indication: MYOCARDIAL INFARCTION
     Dosage: 100 MG, QD
     Route: 048
     Dates: start: 20151003, end: 20151219
  21. ETOPOSIDE. [Suspect]
     Active Substance: ETOPOSIDE
     Indication: LYMPHOMA
     Dosage: 80 MG, UNK
     Route: 041
     Dates: start: 20151027, end: 20151030
  22. ACARBOSE. [Concomitant]
     Active Substance: ACARBOSE
     Indication: DIABETES MELLITUS
     Dosage: 50 MG, TID
     Route: 048
     Dates: start: 20151003, end: 20151219
  23. RASURITEK [Concomitant]
     Active Substance: RASBURICASE
     Indication: PROPHYLAXIS
     Dosage: 10.5 MG, QD
     Route: 042
     Dates: start: 20151027, end: 20151102
  24. ACICLOVIR [Concomitant]
     Active Substance: ACYCLOVIR
     Indication: ANTIVIRAL PROPHYLAXIS
     Dosage: 200 MG, QD
     Route: 048
     Dates: start: 20151026, end: 20151219

REACTIONS (3)
  - Interstitial lung disease [Fatal]
  - Febrile neutropenia [Recovered/Resolved]
  - Enterococcal infection [Recovered/Resolved]

NARRATIVE: CASE EVENT DATE: 20151105
